FAERS Safety Report 10443812 (Version 1)
Quarter: 2014Q3

REPORT INFORMATION
  Report Type: Spontaneous
  Country: US (occurrence: None)
  Receive Date: 20140909
  Receipt Date: 20140909
  Transmission Date: 20150326
  Serious: No
  Sender: FDA-Public Use
  Company Number: None

PATIENT
  Sex: Female

DRUGS (1)
  1. ARM AND HAMMER ORAJEL SENSITIVE FRESHENING WITH FLAVOR BURST [Suspect]
     Active Substance: POTASSIUM NITRATE\SODIUM FLUORIDE

REACTIONS (4)
  - Medication error [None]
  - Oral mucosal exfoliation [None]
  - Tongue exfoliation [None]
  - Oral pain [None]
